FAERS Safety Report 9882555 (Version 1)
Quarter: 2014Q1

REPORT INFORMATION
  Report Type: Spontaneous
  Country: CA (occurrence: CA)
  Receive Date: 20140207
  Receipt Date: 20140207
  Transmission Date: 20141002
  Serious: Yes (Other)
  Sender: FDA-Public Use
  Company Number: PHHY2014CA015344

PATIENT
  Age: 57 Year
  Sex: Male

DRUGS (3)
  1. LAMISIL [Suspect]
     Dosage: UNK UKN, UNK
     Route: 061
  2. PROBIOTIC                          /07343501/ [Concomitant]
     Dosage: UNK UKN, UNK
  3. GOLD BOND MEDICATED FOOT [Concomitant]
     Dosage: UNK UKN, UNK

REACTIONS (7)
  - Cellulitis [Recovered/Resolved with Sequelae]
  - Folliculitis [Recovered/Resolved with Sequelae]
  - Genital rash [Recovered/Resolved with Sequelae]
  - Pain [Recovered/Resolved with Sequelae]
  - Back pain [Recovered/Resolved with Sequelae]
  - Burning sensation [Recovered/Resolved with Sequelae]
  - Erythema [Recovered/Resolved with Sequelae]
